FAERS Safety Report 4752730-X (Version None)
Quarter: 2005Q3

REPORT INFORMATION
  Report Type: 
  Country: None (occurrence: None)
  Receive Date: 20050823
  Receipt Date: 20050815
  Transmission Date: 20060218
  Serious: Yes (Hospitalization)
  Sender: FDA-Public Use
  Company Number: 05-037A

PATIENT
  Sex: Female

DRUGS (3)
  1. LORTAB [Suspect]
     Indication: PROCEDURAL PAIN
     Dates: end: 20050613
  2. BIBR 1048 (DABIGATRAN ETEXILATE) [Concomitant]
  3. ENOXAPARIN SODIUM [Concomitant]

REACTIONS (1)
  - FAECALOMA [None]
